FAERS Safety Report 5955985-9 (Version None)
Quarter: 2008Q4

REPORT INFORMATION
  Report Type: 
  Country: None (occurrence: None)
  Receive Date: 20081112
  Receipt Date: 20081031
  Transmission Date: 20090506
  Serious: Yes (Hospitalization)
  Sender: FDA-Public Use
  Company Number: FABR-1000337

PATIENT
  Age: 37 Year
  Sex: Female

DRUGS (2)
  1. FABRAZYME [Suspect]
     Indication: FABRY'S DISEASE
     Dosage: 1 M/KG, Q2W, INTRAVENOUS, 1 M/KG, Q2W, INTRAVENOUS
     Route: 042
     Dates: start: 20031115, end: 20051111
  2. FABRAZYME [Suspect]
     Indication: FABRY'S DISEASE
     Dosage: 1 M/KG, Q2W, INTRAVENOUS, 1 M/KG, Q2W, INTRAVENOUS
     Route: 042
     Dates: start: 20060121

REACTIONS (5)
  - BREAST CANCER FEMALE [None]
  - BRONCHITIS [None]
  - DIZZINESS [None]
  - HYSTERECTOMY [None]
  - OVARIAN CYST [None]
